FAERS Safety Report 8662494 (Version 4)
Quarter: 2012Q4

REPORT INFORMATION
  Report Type: Report from Study
  Country: US (occurrence: None)
  Receive Date: 20120627
  Receipt Date: 20120914
  Transmission Date: 20130627
  Serious: Yes (Death, Hospitalization)
  Sender: FDA-Public Use
  Company Number: US-JNJFOC-20120610085

PATIENT
  Age: 90 Year
  Sex: Female
  Weight: 92 kg

DRUGS (2)
  1. DECITABINE [Suspect]
     Indication: ACUTE MYELOID LEUKAEMIA
     Dosage: 20 MG/M2, INTRAVENOUS
     Route: 042
     Dates: start: 20120502, end: 20120608
  2. BORTEZOMIB [Suspect]
     Indication: ACUTE MYELOID LEUKAEMIA
     Dosage: 1.3 MG/M2, SUBCUTANEOUS
     Route: 058
     Dates: start: 20120502, end: 20120608

REACTIONS (18)
  - Dyspnoea [None]
  - Hypoxia [None]
  - Anaemia [None]
  - Acidosis [None]
  - Sepsis [None]
  - Muscular weakness [None]
  - Lymphocyte count decreased [None]
  - Platelet count decreased [None]
  - White blood cell count decreased [None]
  - Fatigue [None]
  - Febrile neutropenia [None]
  - Staphylococcal bacteraemia [None]
  - General physical health deterioration [None]
  - Diarrhoea [None]
  - Haemorrhoids [None]
  - Pathogen resistance [None]
  - Renal failure chronic [None]
  - Decreased appetite [None]
